FAERS Safety Report 21264163 (Version 3)
Quarter: 2022Q4

REPORT INFORMATION
  Report Type: Spontaneous
  Country: US (occurrence: US)
  Receive Date: 20220829
  Receipt Date: 20221227
  Transmission Date: 20230112
  Serious: No
  Sender: FDA-Public Use
  Company Number: US-PFIZER INC-PV202200050682

PATIENT
  Age: 43 Year
  Sex: Male

DRUGS (1)
  1. SOMAVERT [Suspect]
     Active Substance: PEGVISOMANT
     Indication: Acromegaly
     Dosage: 30 MG (ABOUT 3 TIMES A WEEK (MONDAY, WEDNESDAY, FRIDAY SCHEDULE))
     Route: 058
     Dates: start: 202211

REACTIONS (3)
  - Off label use [Unknown]
  - Mutism [Unknown]
  - Mental disability [Unknown]
